FAERS Safety Report 14572980 (Version 5)
Quarter: 2019Q4

REPORT INFORMATION
  Report Type: Spontaneous
  Country: FR (occurrence: FR)
  Receive Date: 20180226
  Receipt Date: 20191219
  Transmission Date: 20200122
  Serious: Yes (Hospitalization, Other)
  Sender: FDA-Public Use
  Company Number: FR-GILEAD-2018-0322472

PATIENT
  Age: 86 Year
  Sex: Female
  Weight: 56 kg

DRUGS (10)
  1. MABTHERA [Suspect]
     Active Substance: RITUXIMAB
     Indication: NON-HODGKIN^S LYMPHOMA
     Dosage: CYCLE TOUS LES 21 JOURS : 6 CYCLES PROGRAMM?S
     Route: 041
     Dates: start: 20171110, end: 20180122
  2. HYDROXYCHLOROQUINE [Concomitant]
     Active Substance: HYDROXYCHLOROQUINE
  3. MABTHERA [Suspect]
     Active Substance: RITUXIMAB
     Dosage: UNK
     Route: 065
     Dates: start: 201406, end: 201411
  4. VALACICLOVIR [Concomitant]
     Active Substance: VALACYCLOVIR HYDROCHLORIDE
  5. FLECAINIDE [Concomitant]
     Active Substance: FLECAINIDE
  6. BACTRIM [Concomitant]
     Active Substance: SULFAMETHOXAZOLE\TRIMETHOPRIM
  7. SIMVASTATINE [Concomitant]
     Active Substance: SIMVASTATIN
  8. VALSARTAN. [Concomitant]
     Active Substance: VALSARTAN
  9. ZYDELIG [Suspect]
     Active Substance: IDELALISIB
     Indication: NON-HODGKIN^S LYMPHOMA
     Dosage: 300 MG, QD
     Route: 048
     Dates: start: 201711, end: 20180121
  10. MABTHERA [Suspect]
     Active Substance: RITUXIMAB
     Dosage: CYCLE TOUS LES 21 JOURS : 6 CYCLES PROGRAMM?S
     Route: 041

REACTIONS (1)
  - Drug reaction with eosinophilia and systemic symptoms [Recovered/Resolved]

NARRATIVE: CASE EVENT DATE: 20171227
